FAERS Safety Report 4800440-2 (Version None)
Quarter: 2005Q3

REPORT INFORMATION
  Report Type: 
  Country: None (occurrence: None)
  Receive Date: 20050929
  Receipt Date: 20050923
  Transmission Date: 20060218
  Serious: Yes (Hospitalization, Other)
  Sender: FDA-Public Use
  Company Number: 2005BH001921

PATIENT
  Sex: Male

DRUGS (1)
  1. SODIUM CHLORIDE 0.9% [Suspect]
     Indication: HAEMODIALYSIS
     Dosage: 1000 ML; IV
     Route: 042
     Dates: start: 20050921

REACTIONS (5)
  - BODY TEMPERATURE INCREASED [None]
  - CHILLS [None]
  - HAEMORRHAGE [None]
  - SHOULDER PAIN [None]
  - TREMOR [None]
